FAERS Safety Report 8533709-9 (Version None)
Quarter: 2012Q3

REPORT INFORMATION
  Report Type: 
  Country: None (occurrence: None)
  Receive Date: 20120724
  Receipt Date: 20120718
  Transmission Date: 20120928
  Serious: Yes (Other)
  Sender: FDA-Public Use
  Company Number: US-TEVA-349189USA

PATIENT
  Sex: Female
  Weight: 68.1 kg

DRUGS (3)
  1. HYDROCHLOROTHIAZIDE [Suspect]
     Indication: HYPERTENSION
     Dosage: 25 MILLIGRAM;
     Dates: start: 20120625, end: 20120626
  2. KALBITOR [Suspect]
     Indication: HEREDITARY ANGIOEDEMA
     Dosage: 30 MILLIGRAM; TOTAL NUMBER DOSES 12 OR 13
     Route: 058
     Dates: start: 20111101
  3. KALBITOR [Suspect]
     Dosage: 30 MILLIGRAM;
     Route: 058
     Dates: start: 20120626, end: 20120626

REACTIONS (7)
  - FEELING ABNORMAL [None]
  - FLUSHING [None]
  - DIZZINESS [None]
  - HEREDITARY ANGIOEDEMA [None]
  - MUSCLE SPASMS [None]
  - HYPERTENSION [None]
  - FEELING JITTERY [None]
